FAERS Safety Report 16397758 (Version 3)
Quarter: 2022Q3

REPORT INFORMATION
  Report Type: Report from Study
  Country: CN (occurrence: None)
  Receive Date: 20190606
  Receipt Date: 20220805
  Transmission Date: 20221027
  Serious: Yes (Death)
  Sender: FDA-Public Use
  Company Number: CN-ROCHE-2331647

PATIENT
  Age: 69 Year
  Sex: Female
  Weight: 54 kg

DRUGS (21)
  1. ATEZOLIZUMAB [Suspect]
     Active Substance: ATEZOLIZUMAB
     Indication: Ovarian cancer
     Dosage: ON DAY 1 OF EACH 21-DAY CYCLE FOR A TOTAL OF 6 CYCLES?DATE OF MOST RECENT DOSE OF BLINDED ATEZOLIZUM
     Route: 041
     Dates: start: 20180926
  2. PACLITAXEL [Suspect]
     Active Substance: PACLITAXEL
     Indication: Ovarian cancer
     Dosage: DATE OF MOST RECENT DOSE OF PACLITAXEL (213MG) PRIOR TO AE AND SAE ONSET:29/JAN/2019
     Route: 042
     Dates: start: 20180926
  3. CARBOPLATIN [Suspect]
     Active Substance: CARBOPLATIN
     Indication: Ovarian cancer
     Dosage: DATE OF MOST RECENT DOSE OF CARBOPLATIN (482 MG) PRIOR TO AE AND SAE ONSET:29/JAN/2019
     Route: 042
     Dates: start: 20180926
  4. BEVACIZUMAB [Suspect]
     Active Substance: BEVACIZUMAB
     Indication: Ovarian cancer
     Dosage: DATE OF MOST RECENT DOSE OF BEVACIZUMAB (825 MG) PRIOR TO AE AND SAE ONSET:11/APR/2019
     Route: 042
     Dates: start: 20181019
  5. CHLORPROMAZINE HYDROCHLORIDE [Concomitant]
     Active Substance: CHLORPROMAZINE HYDROCHLORIDE
     Indication: Poor quality sleep
     Route: 065
  6. POTASSIUM CHLORIDE [Concomitant]
     Active Substance: POTASSIUM CHLORIDE
     Indication: Hypokalaemia
     Route: 065
     Dates: start: 20190502, end: 20190505
  7. POTASSIUM CHLORIDE [Concomitant]
     Active Substance: POTASSIUM CHLORIDE
     Dates: start: 20190505
  8. AMINO ACIDS, SOURCE UNSPECIFIED [Concomitant]
     Active Substance: AMINO ACIDS, SOURCE UNSPECIFIED
     Indication: Hypoalbuminaemia
     Dates: start: 20190502, end: 20190505
  9. IRON PROTEINSUCCINYLATE [Concomitant]
     Indication: Anaemia
     Dates: start: 20190504
  10. SODIUM CHLORIDE [Concomitant]
     Active Substance: SODIUM CHLORIDE
     Indication: Hyponatraemia
     Dates: start: 20190429, end: 20190430
  11. SODIUM CHLORIDE [Concomitant]
     Active Substance: SODIUM CHLORIDE
     Dates: start: 20190504, end: 20190504
  12. DICLOFENAC SODIUM [Concomitant]
     Active Substance: DICLOFENAC SODIUM
     Indication: Pain in extremity
     Dates: start: 20190429
  13. SOLIFENACIN SUCCINATE [Concomitant]
     Active Substance: SOLIFENACIN SUCCINATE
     Route: 065
     Dates: start: 20190430
  14. TORSEMIDE [Concomitant]
     Active Substance: TORSEMIDE
     Indication: Polyuria
     Dates: start: 20190430, end: 20190430
  15. TORSEMIDE [Concomitant]
     Active Substance: TORSEMIDE
     Dates: start: 20190504, end: 20190504
  16. ALBUMIN PREPARED FROM HUMAN PLASMA [Concomitant]
     Indication: Hypoalbuminaemia
     Dates: start: 20190430, end: 20190430
  17. ALBUMIN PREPARED FROM HUMAN PLASMA [Concomitant]
     Dates: start: 20190504, end: 20190504
  18. FEVER COOLING PATCH [Concomitant]
     Indication: Pyrexia
     Dates: start: 20190501, end: 20190501
  19. FEVER COOLING PATCH [Concomitant]
     Dates: start: 20190504, end: 20190504
  20. PALONOSETRON HYDROCHLORIDE [Concomitant]
     Active Substance: PALONOSETRON HYDROCHLORIDE
     Indication: Vomiting
     Dates: start: 20190504, end: 20190504
  21. OXYGEN [Concomitant]
     Active Substance: OXYGEN
     Indication: Agitation
     Route: 055
     Dates: start: 20190501, end: 20190501

REACTIONS (1)
  - Death [Fatal]

NARRATIVE: CASE EVENT DATE: 20190530
